FAERS Safety Report 4479578-8 (Version None)
Quarter: 2004Q4

REPORT INFORMATION
  Report Type: 
  Country: None (occurrence: None)
  Receive Date: 20041015
  Receipt Date: 20041006
  Transmission Date: 20050328
  Serious: Yes (Hospitalization)
  Sender: FDA-Public Use
  Company Number: 001024

PATIENT
  Age: 52 Year
  Sex: Female

DRUGS (20)
  1. ZEVALIN [Suspect]
     Indication: LYMPHOMA
     Dosage: SEE IMAGE
     Route: 042
     Dates: start: 20040801, end: 20040801
  2. ZEVALIN [Suspect]
     Indication: LYMPHOMA
     Dosage: SEE IMAGE
     Route: 042
     Dates: start: 20040801, end: 20040801
  3. ZEVALIN [Suspect]
     Indication: LYMPHOMA
     Dosage: SEE IMAGE
     Route: 042
     Dates: start: 20040801, end: 20040801
  4. ZEVALIN [Suspect]
     Indication: LYMPHOMA
     Dosage: SEE IMAGE
     Route: 042
     Dates: start: 20040801, end: 20040801
  5. EPOGEN [Concomitant]
  6. FERRLECIT [Concomitant]
  7. ZEMPLAR [Concomitant]
  8. TRICOR [Concomitant]
  9. RENAGEL [Concomitant]
  10. NEURONTIN [Concomitant]
  11. ACTOS   /USA/ (PIOGLITAZONE HYDROCHLORIDE) [Concomitant]
  12. PHOSLO [Concomitant]
  13. ALLEGRA [Concomitant]
  14. ZYPREXA [Concomitant]
  15. GLUCOTROL [Concomitant]
  16. EVISTA [Concomitant]
  17. LORAZEPAM [Concomitant]
  18. ZOLOFT [Concomitant]
  19. NEPHROCAPS (FOLIC ACID, VITAMINS NOS) [Concomitant]
  20. PERI-COLACE [Concomitant]

REACTIONS (8)
  - ARTERIOVENOUS FISTULA, ACQUIRED [None]
  - DERMATITIS EXFOLIATIVE [None]
  - HYPERKERATOSIS [None]
  - LICHEN PLANUS [None]
  - LYMPHOCYTIC INFILTRATION [None]
  - PARAKERATOSIS [None]
  - PITTING OEDEMA [None]
  - PRURITUS [None]
